FAERS Safety Report 6160632-X (Version None)
Quarter: 2009Q2

REPORT INFORMATION
  Report Type: 
  Country: None (occurrence: None)
  Receive Date: 20090420
  Receipt Date: 20090323
  Transmission Date: 20091009
  Serious: Yes (Congenital Anomaly, Other)
  Sender: FDA-Public Use
  Company Number: FR-CELGENEUS-TNZFR200800056

PATIENT
  Sex: Male
  Weight: 6.8 kg

DRUGS (1)
  1. INNOHEP [Suspect]
     Route: 058
     Dates: start: 20070412, end: 20070427

REACTIONS (2)
  - DRUG EXPOSURE DURING PREGNANCY [None]
  - RENAL DISORDER [None]
